FAERS Safety Report 20510637 (Version 1)
Quarter: 2022Q1

REPORT INFORMATION
  Report Type: Report from Study
  Country: US (occurrence: None)
  Receive Date: 20220224
  Receipt Date: 20220224
  Transmission Date: 20220424
  Serious: Yes (Hospitalization)
  Sender: FDA-Public Use
  Company Number: US-ROCHE-2851447

PATIENT
  Age: 75 Year
  Sex: Female
  Weight: 73.9 kg

DRUGS (3)
  1. ATEZOLIZUMAB [Suspect]
     Active Substance: ATEZOLIZUMAB
     Indication: Non-small cell lung cancer
     Dosage: MOST RECENT DOSE OF STUDY DRUG ATEZOLIZUMAB (1200 MG) PRIOR TO ADVERSE EVENT ONSET: 07JUN/2021, 30/A
     Route: 041
     Dates: start: 20210517
  2. CISPLATIN [Suspect]
     Active Substance: CISPLATIN
     Indication: Non-small cell lung cancer
     Dosage: MOST RECENT DOSE OF CISPLATIN (75 MG/M2) PRIOR TO ADVERSE EVENT ONSET DATE: 07JUN/2021, 30/AUG/2021
     Route: 042
     Dates: start: 20210517
  3. DOCETAXEL [Suspect]
     Active Substance: DOCETAXEL
     Indication: Non-small cell lung cancer
     Dosage: MOST RECENT DOSE OF STUDY DRUG DOCETAXEL (75 MG/M2) PRIOR TO ADVERSE EVENT ONSET DATE: 07JUN/2021, 3
     Route: 042
     Dates: start: 20210517

REACTIONS (4)
  - Hyponatraemia [Recovered/Resolved]
  - Anaemia [Unknown]
  - Hypokalaemia [Unknown]
  - Hypomagnesaemia [Unknown]

NARRATIVE: CASE EVENT DATE: 20210613
